FAERS Safety Report 4676546-8 (Version None)
Quarter: 2005Q2

REPORT INFORMATION
  Report Type: 
  Country: None (occurrence: None)
  Receive Date: 20050526
  Receipt Date: 20050517
  Transmission Date: 20051028
  Serious: Yes (Death)
  Sender: FDA-Public Use
  Company Number: 2005S1003724

PATIENT
  Age: 60 Year
  Sex: Female

DRUGS (9)
  1. CLOZAPINE [Suspect]
     Indication: SCHIZOPHRENIA, PARANOID TYPE
     Dosage: 25 MG; QAM; PO
     Route: 048
     Dates: start: 20030701, end: 20050301
  2. CLOZAPINE [Suspect]
     Dosage: 300 MG; HS; PO
     Route: 048
     Dates: start: 20030701, end: 20050301
  3. CLONAZEPAM [Concomitant]
  4. SYMBYAX [Concomitant]
  5. BUSPIRONE HCL [Concomitant]
  6. TRIFLUOPERAZINE HCL [Concomitant]
  7. HYDROCHLORIDE [Concomitant]
  8. BENZATROPINE MESILATE [Concomitant]
  9. LISINOPRIL [Concomitant]

REACTIONS (1)
  - CARDIAC ARREST [None]
